FAERS Safety Report 9586259 (Version 1)
Quarter: 2013Q4

REPORT INFORMATION
  Report Type: Spontaneous
  Country: US (occurrence: None)
  Receive Date: 20131001
  Receipt Date: 20131001
  Transmission Date: 20140711
  Serious: Yes (Other)
  Sender: FDA-Public Use
  Company Number: 2013AP008363

PATIENT
  Age: 3 Day
  Sex: 0

DRUGS (1)
  1. BUPROPION HYDROCHLORIDE [Suspect]
     Indication: DEPRESSION

REACTIONS (4)
  - Hyperinsulinism [None]
  - Hypoglycaemia neonatal [None]
  - Convulsion neonatal [None]
  - Maternal drugs affecting foetus [None]
